FAERS Safety Report 10647205 (Version 3)
Quarter: 2014Q4

REPORT INFORMATION
  Report Type: Spontaneous
  Country: US (occurrence: US)
  Receive Date: 20141211
  Receipt Date: 20141231
  Transmission Date: 20150529
  Serious: Yes (Other)
  Sender: FDA-Public Use
  Company Number: US-INCYTE CORPORATION-2014IN002835

PATIENT
  Age: 72 Year
  Sex: Male
  Weight: 106.5 kg

DRUGS (8)
  1. HUMULIN NOS [Concomitant]
     Active Substance: INSULIN HUMAN
  2. METHOTREXATE [Concomitant]
     Active Substance: METHOTREXATE
  3. AMLODIPINE [Concomitant]
     Active Substance: AMLODIPINE BESYLATE
  4. FLAXSEED [Concomitant]
     Active Substance: FLAX SEED
  5. FOLIC ACID. [Concomitant]
     Active Substance: FOLIC ACID
  6. JAKAFI [Suspect]
     Active Substance: RUXOLITINIB
     Indication: MYELOFIBROSIS
     Dosage: 20 MG, BID
     Route: 048
     Dates: start: 20140729, end: 20140828
  7. ASPIRIN. [Concomitant]
     Active Substance: ASPIRIN
  8. FINASTERIDE. [Concomitant]
     Active Substance: FINASTERIDE

REACTIONS (3)
  - Hypoglycaemia [Recovered/Resolved]
  - Blood lactate dehydrogenase increased [Unknown]
  - No therapeutic response [Unknown]

NARRATIVE: CASE EVENT DATE: 2014
